FAERS Safety Report 7806587-0 (Version None)
Quarter: 2011Q4

REPORT INFORMATION
  Report Type: 
  Country: None (occurrence: None)
  Receive Date: 20111011
  Receipt Date: 20111006
  Transmission Date: 20120403
  Serious: Yes (Death, Hospitalization, Other)
  Sender: FDA-Public Use
  Company Number: US-AMGEN-USASP2011011876

PATIENT
  Age: 74 Year
  Sex: Male
  Weight: 113.38 kg

DRUGS (10)
  1. NPLATE [Suspect]
     Indication: IDIOPATHIC THROMBOCYTOPENIC PURPURA
     Dosage: 4 MUG/KG, UNK
     Dates: start: 20100923, end: 20101222
  2. LANTUS [Concomitant]
  3. NASACORT [Concomitant]
  4. TOPROL-XL [Concomitant]
     Dosage: 50 MG, QD
     Route: 048
  5. RITUXIMAB [Concomitant]
     Indication: IDIOPATHIC THROMBOCYTOPENIC PURPURA
  6. DILTIAZEM HCL [Concomitant]
     Dosage: 240 MG, QD
     Route: 048
  7. LEVAQUIN [Concomitant]
     Dosage: 500 MG, QD
     Route: 048
  8. COLCHICINE [Concomitant]
     Dosage: 0.6 MG, UNK
     Route: 048
  9. NEXIUM [Concomitant]
     Dosage: 40 MG, QD
     Route: 048
  10. LASIX [Concomitant]
     Dosage: 40 MG, UNK
     Route: 048

REACTIONS (5)
  - HOSPITALISATION [None]
  - IDIOPATHIC THROMBOCYTOPENIC PURPURA [None]
  - DRUG INEFFECTIVE [None]
  - FATIGUE [None]
  - CONDITION AGGRAVATED [None]
